FAERS Safety Report 23236041 (Version 1)
Quarter: 2023Q4

REPORT INFORMATION
  Report Type: Report from Study
  Country: US (occurrence: US)
  Receive Date: 20231128
  Receipt Date: 20231128
  Transmission Date: 20240110
  Serious: Yes (Other)
  Sender: FDA-Public Use
  Company Number: US-002147023-NVSC2023US248624

PATIENT
  Sex: Male

DRUGS (1)
  1. ENTRESTO [Suspect]
     Active Substance: SACUBITRIL\VALSARTAN
     Indication: Product used for unknown indication
     Dosage: 0.5 DOSAGE FORM, BID (25 MG OF HALF TABLET IN THE MORNING AND A HALF TABLET IN THE EVENING) STARTED
     Route: 048

REACTIONS (4)
  - Cataract [Unknown]
  - Weight increased [Unknown]
  - Underdose [Unknown]
  - Wrong technique in product usage process [Unknown]
